FAERS Safety Report 12721214 (Version 1)
Quarter: 2016Q3

REPORT INFORMATION
  Report Type: Spontaneous
  Country: ES (occurrence: ES)
  Receive Date: 20160906
  Receipt Date: 20160906
  Transmission Date: 20161109
  Serious: No
  Sender: FDA-Public Use
  Company Number: None

PATIENT
  Age: 45 Year
  Sex: Female
  Weight: 27.24 kg

DRUGS (7)
  1. TRILEPTAL [Concomitant]
     Active Substance: OXCARBAZEPINE
  2. RIVOTRIL [Concomitant]
     Active Substance: CLONAZEPAM
  3. VIMPAT [Concomitant]
     Active Substance: LACOSAMIDE
  4. FLIXONASE [Concomitant]
     Active Substance: FLUTICASONE PROPIONATE
  5. ESCITALOPRAM [Concomitant]
     Active Substance: ESCITALOPRAM OXALATE
  6. BONVIVA [Concomitant]
     Active Substance: IBANDRONATE SODIUM
  7. FYCOMPA [Suspect]
     Active Substance: PERAMPANEL
     Indication: EPILEPSY
     Dates: start: 20160517, end: 20160715

REACTIONS (6)
  - Intentional self-injury [None]
  - Homicidal ideation [None]
  - Violence-related symptom [None]
  - Wound [None]
  - Suicidal ideation [None]
  - Aggression [None]

NARRATIVE: CASE EVENT DATE: 20160721
